FAERS Safety Report 7547417-4 (Version None)
Quarter: 2011Q2

REPORT INFORMATION
  Report Type: 
  Country: None (occurrence: None)
  Receive Date: 20110614
  Receipt Date: 20091129
  Transmission Date: 20111010
  Serious: Yes (Death, Other)
  Sender: FDA-Public Use
  Company Number: US-BAYER-200941240NA

PATIENT
  Age: 72 Year
  Sex: Female
  Weight: 62 kg

DRUGS (11)
  1. ZYLOPRIM [Concomitant]
     Dosage: 100 MG, QD
  2. FUROSEMIDE [Concomitant]
     Indication: FLUID RETENTION
     Dosage: 40 MG, QD
     Dates: start: 20070101
  3. INDOCIN [Concomitant]
     Dosage: UNK
     Route: 048
     Dates: start: 19900101
  4. ATENOLOL [Concomitant]
     Indication: HYPERTENSION
  5. TRASYLOL [Suspect]
     Indication: CORONARY ARTERY BYPASS
     Dosage: UNK
     Route: 042
     Dates: start: 20071107
  6. PRAVACHOL [Concomitant]
     Dosage: 20 MG, QD
     Dates: start: 20070101
  7. ACETYLSALICYLIC ACID SRT [Concomitant]
     Dosage: 1.5 GRAINS
     Route: 048
  8. HEPARIN [Concomitant]
     Dosage: UNK
     Route: 042
     Dates: start: 20071107
  9. LANOXIN [Concomitant]
     Dosage: 0.125 MG, QD
     Route: 048
  10. ATENOLOL [Concomitant]
     Indication: ANGINA PECTORIS
     Dosage: UNK
     Route: 048
     Dates: start: 20040101
  11. OMEPRAZOLE [Concomitant]
     Indication: GASTROOESOPHAGEAL REFLUX DISEASE
     Dosage: UNK
     Route: 048
     Dates: start: 20040101

REACTIONS (16)
  - DEATH [None]
  - EMOTIONAL DISTRESS [None]
  - UNEVALUABLE EVENT [None]
  - ANHEDONIA [None]
  - INJURY [None]
  - CEREBROVASCULAR ACCIDENT [None]
  - CARDIAC DISORDER [None]
  - MULTI-ORGAN FAILURE [None]
  - RENAL IMPAIRMENT [None]
  - ANXIETY [None]
  - FEAR [None]
  - DEPRESSION [None]
  - RENAL FAILURE [None]
  - RENAL INJURY [None]
  - STRESS [None]
  - PAIN [None]
